FAERS Safety Report 9414626 (Version 2)
Quarter: 2013Q3

REPORT INFORMATION
  Report Type: Spontaneous
  Country: US (occurrence: None)
  Receive Date: 20130717
  Receipt Date: 20130826
  Transmission Date: 20140515
  Serious: Yes (Hospitalization)
  Sender: FDA-Public Use
  Company Number: AUR-APL-2013-05873

PATIENT
  Age: 77 Year
  Sex: Female

DRUGS (1)
  1. CIPROFLOXACIN [Suspect]
     Indication: CYSTITIS
     Dosage: 2 TIMES A DAY, UNKNOWN
     Dates: start: 20130308, end: 201303

REACTIONS (5)
  - Pain [None]
  - Pain in extremity [None]
  - Cerebrovascular accident [None]
  - Muscle spasticity [None]
  - Hypoaesthesia [None]
